FAERS Safety Report 4842302-0 (Version None)
Quarter: 2005Q4

REPORT INFORMATION
  Report Type: 
  Country: None (occurrence: None)
  Receive Date: 20051129
  Receipt Date: 20051109
  Transmission Date: 20060501
  Serious: Yes (Other)
  Sender: FDA-Public Use
  Company Number: US_0407104490

PATIENT
  Age: 44 Year
  Sex: Female
  Weight: 107.7 kg

DRUGS (23)
  1. ZYPREXA [Suspect]
     Indication: PSYCHOTIC DISORDER
     Dosage: 15 MG
     Dates: start: 19990101, end: 20030101
  2. ZYPREXA ZYDIS [Suspect]
     Indication: BIPOLAR DISORDER
     Dosage: 20 MG, EACH EVENING, ORAL
     Route: 048
     Dates: start: 20020524, end: 20030101
  3. KEFLEX [Concomitant]
  4. MULTIVITAMINS NOS (MULTIVITAMINS NOS) [Concomitant]
  5. GEODON [Concomitant]
  6. QUETIAPINE (QUETIAPINE) [Concomitant]
  7. RISPERIDONE [Concomitant]
  8. HALOPERIDOL [Concomitant]
  9. NAVANE [Concomitant]
  10. DEPAKOTE [Concomitant]
  11. BUPROPION HCL [Concomitant]
  12. CELEXA [Concomitant]
  13. SYMBYAX [Concomitant]
  14. PAXIL [Concomitant]
  15. VENLAFAXINE HCL [Concomitant]
  16. TRAZODONE HCL [Concomitant]
  17. LUVOX [Concomitant]
  18. INSULIN [Concomitant]
  19. ORAL CONTRACEPTIVE NOS (ORAL CONTRACEPTIVE NOS) [Concomitant]
  20. LORAZEPAM [Concomitant]
  21. ALPRAZOLAM [Concomitant]
  22. ARTANE [Concomitant]
  23. DEPO-PROVERA SUSPENSION/INJ [Concomitant]

REACTIONS (59)
  - ABDOMINAL PAIN [None]
  - ABDOMINAL PAIN UPPER [None]
  - ADRENAL DISORDER [None]
  - AMNESIA [None]
  - ANXIETY DISORDER [None]
  - BLOOD CHOLESTEROL INCREASED [None]
  - BLOOD CREATINE PHOSPHOKINASE INCREASED [None]
  - BLOOD OESTROGEN DECREASED [None]
  - BLOOD TRIGLYCERIDES INCREASED [None]
  - BLOOD UREA DECREASED [None]
  - BONE DENSITY DECREASED [None]
  - CHEST PAIN [None]
  - CHOLELITHIASIS [None]
  - CONFUSIONAL STATE [None]
  - CONSTIPATION [None]
  - CONTUSION [None]
  - DEPENDENCE [None]
  - DEPRESSION [None]
  - DIABETES MELLITUS [None]
  - DIARRHOEA [None]
  - DIZZINESS [None]
  - FATIGUE [None]
  - FOOD CRAVING [None]
  - HALLUCINATION, AUDITORY [None]
  - HEADACHE [None]
  - HORMONE LEVEL ABNORMAL [None]
  - HYPERTENSION [None]
  - HYPERVENTILATION [None]
  - HYPOAESTHESIA [None]
  - INCREASED APPETITE [None]
  - INFUSION SITE BRUISING [None]
  - LEUKOCYTOSIS [None]
  - MALAISE [None]
  - MENOMETRORRHAGIA [None]
  - MENORRHAGIA [None]
  - MONOCYTE COUNT INCREASED [None]
  - MOOD SWINGS [None]
  - NAUSEA [None]
  - NERVOUSNESS [None]
  - NEUROPATHY PERIPHERAL [None]
  - OVARIAN CYST [None]
  - PALPITATIONS [None]
  - PANCREATITIS [None]
  - PANIC ATTACK [None]
  - PARAESTHESIA [None]
  - PEPTIC ULCER [None]
  - PREMENSTRUAL SYNDROME [None]
  - PRURITUS [None]
  - PSYCHOSEXUAL DISORDER [None]
  - SOMNOLENCE [None]
  - TACHYCARDIA [None]
  - UMBILICAL HERNIA [None]
  - URINARY INCONTINENCE [None]
  - URTICARIA [None]
  - VAGINAL DISCHARGE [None]
  - VAGINAL HAEMORRHAGE [None]
  - VISION BLURRED [None]
  - VOMITING [None]
  - WEIGHT INCREASED [None]
